FAERS Safety Report 11812034 (Version 2)
Quarter: 2015Q4

REPORT INFORMATION
  Report Type: Spontaneous
  Country: IT (occurrence: IT)
  Receive Date: 20151208
  Receipt Date: 20151229
  Transmission Date: 20160305
  Serious: Yes (Death)
  Sender: FDA-Public Use
  Company Number: IT-JNJFOC-20151205733

PATIENT
  Age: 84 Year
  Sex: Female

DRUGS (11)
  1. MIRTAZAPIN [Concomitant]
     Active Substance: MIRTAZAPINE
     Indication: DEPRESSION
     Route: 048
  2. DELTACORTENE [Concomitant]
     Active Substance: PREDNISONE
     Indication: RHEUMATOID ARTHRITIS
     Route: 048
  3. SULAMID [Concomitant]
     Active Substance: AMISULPRIDE
     Route: 048
  4. RANITIDINE [Concomitant]
     Active Substance: RANITIDINE\RANITIDINE HYDROCHLORIDE
     Indication: GASTRITIS
     Route: 048
  5. TAVOR [Concomitant]
     Active Substance: LORAZEPAM
     Indication: DEPRESSION
     Route: 048
  6. XARELTO [Suspect]
     Active Substance: RIVAROXABAN
     Indication: PRODUCT USED FOR UNKNOWN INDICATION
     Route: 048
     Dates: start: 20150101
  7. MIRTAZAPINE. [Concomitant]
     Active Substance: MIRTAZAPINE
     Indication: DEPRESSION
     Route: 048
  8. LASIX [Concomitant]
     Active Substance: FUROSEMIDE
     Indication: HYPOTENSION
     Route: 048
  9. LANOXIN [Concomitant]
     Active Substance: DIGOXIN
     Indication: ATRIAL FIBRILLATION
     Route: 048
  10. SEQUACOR [Concomitant]
     Active Substance: BISOPROLOL
     Indication: ATRIAL FIBRILLATION
     Route: 048
  11. LORAZEPAM. [Concomitant]
     Active Substance: LORAZEPAM
     Indication: DEPRESSION
     Route: 048

REACTIONS (3)
  - Retroperitoneal haematoma [Fatal]
  - Haemorrhagic hepatic cyst [Fatal]
  - Renal cyst ruptured [Fatal]

NARRATIVE: CASE EVENT DATE: 20151008
